FAERS Safety Report 9503327 (Version 6)
Quarter: 2014Q2

REPORT INFORMATION
  Report Type: Spontaneous
  Country: US (occurrence: US)
  Receive Date: 20130906
  Receipt Date: 20140603
  Transmission Date: 20141212
  Serious: Yes (Hospitalization)
  Sender: FDA-Public Use
  Company Number: US-PFIZER INC-2013246693

PATIENT
  Age: 64 Year
  Sex: Female
  Weight: 65.76 kg

DRUGS (10)
  1. LYRICA [Suspect]
     Indication: DIABETIC NEUROPATHY
     Dosage: 150 MG, 3X/DAY
     Route: 048
  2. CORDARONE [Suspect]
     Dosage: UNK
  3. NOVOLOG [Concomitant]
     Indication: DIABETES MELLITUS
     Dosage: UNK
  4. NOVOLIN [Concomitant]
     Indication: DIABETES MELLITUS
     Dosage: UNK
  5. ADVAIR [Concomitant]
     Dosage: UNK
  6. LISINOPRIL [Concomitant]
     Dosage: UNK
  7. LEVOTHYROXINE [Concomitant]
     Dosage: UNK
  8. SIMVASTATIN [Concomitant]
     Dosage: UNK
  9. VENTOLIN [Concomitant]
     Dosage: UNK
  10. ALLOPURINOL [Concomitant]
     Dosage: UNK

REACTIONS (2)
  - Limb deformity [Unknown]
  - Blood pressure increased [Unknown]
